APPROVED DRUG PRODUCT: INPERSOL-LC/LM W/ DEXTROSE 2.5% IN PLASTIC CONTAINER
Active Ingredient: CALCIUM CHLORIDE; DEXTROSE; MAGNESIUM CHLORIDE; SODIUM CHLORIDE; SODIUM LACTATE
Strength: 18.4MG/100ML;2.5GM/100ML;5.08MG/100ML;538MG/100ML;448MG/100ML
Dosage Form/Route: SOLUTION;INTRAPERITONEAL
Application: A020374 | Product #002
Applicant: FRESENIUS USA INC
Approved: Jun 13, 1994 | RLD: No | RS: No | Type: DISCN